FAERS Safety Report 16656193 (Version 2)
Quarter: 2019Q3

REPORT INFORMATION
  Report Type: Spontaneous
  Country: ES (occurrence: ES)
  Receive Date: 20190801
  Receipt Date: 20190920
  Transmission Date: 20191004
  Serious: Yes (Other)
  Sender: FDA-Public Use
  Company Number: ES-MYLANLABS-2019M1071963

PATIENT
  Age: 19 Year
  Sex: Female

DRUGS (4)
  1. RISPERDAL [Suspect]
     Active Substance: RISPERIDONE
     Dosage: 2 MILLIGRAM
     Route: 065
  2. INVEGA [Suspect]
     Active Substance: PALIPERIDONE
     Indication: PSYCHOTIC DISORDER
     Dosage: UNK
     Route: 048
  3. LEPONEX [Suspect]
     Active Substance: CLOZAPINE
     Indication: PSYCHOTIC DISORDER
     Dosage: 75 MILLIGRAM
     Route: 065
  4. RISPERDAL [Suspect]
     Active Substance: RISPERIDONE
     Indication: PSYCHOTIC DISORDER
     Dosage: UNK
     Route: 065

REACTIONS (11)
  - Psychotic disorder [Unknown]
  - Blood prolactin increased [Unknown]
  - Aggression [Unknown]
  - Off label use [Unknown]
  - Dizziness [Unknown]
  - Head discomfort [Unknown]
  - Amenorrhoea [Unknown]
  - Galactorrhoea [Unknown]
  - Fatigue [Unknown]
  - Dyskinesia [Unknown]
  - Adverse drug reaction [Unknown]
